FAERS Safety Report 9641662 (Version 1)
Quarter: 2013Q4

REPORT INFORMATION
  Report Type: Spontaneous
  Country: GB (occurrence: GB)
  Receive Date: 20131023
  Receipt Date: 20131023
  Transmission Date: 20140711
  Serious: Yes (Other)
  Sender: FDA-Public Use
  Company Number: GB-BAYER-2013-128173

PATIENT
  Sex: 0

DRUGS (3)
  1. XARELTO [Suspect]
     Dosage: UNK
  2. ACETYLSALICYLIC ACID (} 100 MG) [Suspect]
  3. CLOPIDOGREL [Suspect]

REACTIONS (1)
  - Haemoglobin decreased [None]
